FAERS Safety Report 21435099 (Version 1)
Quarter: 2022Q4

REPORT INFORMATION
  Report Type: Report from Study
  Country: FR (occurrence: FR)
  Receive Date: 20221010
  Receipt Date: 20221010
  Transmission Date: 20230112
  Serious: Yes (Other)
  Sender: FDA-Public Use
  Company Number: FR-BAYER-2022A138542

PATIENT
  Age: 42 Year
  Sex: Male
  Weight: 59 kg

DRUGS (8)
  1. TRASYLOL [Suspect]
     Active Substance: APROTININ
     Indication: Heart transplant
     Dosage: 350 MILLILITRE TOTAL LOADING DOSE 1 MILLION KIU
     Route: 042
     Dates: start: 20190524, end: 20190524
  2. WARFARIN [Concomitant]
     Active Substance: WARFARIN
  3. HEPARIN [Concomitant]
     Active Substance: HEPARIN SODIUM
     Dosage: 30 KILO-INTERNATIONAL UNIT TOTAL DURING SURGERY
     Dates: start: 20190524, end: 20190524
  4. HUMAN RED BLOOD CELL [Concomitant]
     Active Substance: HUMAN RED BLOOD CELL
     Dosage: 2700 MILLILITRE INTRAOPERATIVELY AND UP TO 48 HOURS AFTER SURGERY
     Dates: start: 20190524
  5. PLATELETS [Concomitant]
     Active Substance: HUMAN PLATELET, ALLOGENIC
     Indication: Transfusion
     Dosage: 1400 MILLILITRE INTRAOPERATIVELY AND UP TO 48 HOURS AFTER SURGERY
     Route: 042
     Dates: start: 20190524
  6. FRESH FROZEN PLASMA [Concomitant]
     Active Substance: HUMAN PLASMA
     Indication: Transfusion
     Dosage: 4400 MILLILITRE INTRAOPERATIVELY AND UP TO 48 HOURS AFTER SURGERY
     Route: 042
     Dates: start: 20190524
  7. FIBRINOGEN [Concomitant]
     Active Substance: FIBRINOGEN HUMAN
     Indication: Transfusion
     Dosage: 8 GRAM INTRAOPERATIVELY AND UP TO 48 HOURS AFTER SURGERY
     Route: 042
     Dates: start: 20190524
  8. PROTHROMBIN COMPLEX CONCENTRATE NOS [Concomitant]
     Active Substance: COAGULATION FACTOR IX HUMAN\COAGULATION FACTOR VII HUMAN\COAGULATION FACTOR X HUMAN\PROTHROMBIN
     Indication: Transfusion
     Dosage: 2000 MILLILITRE INTRAOPERATIVELY AND UP TO 48 HOURS AFTER SURGERY
     Route: 042
     Dates: start: 20190524

REACTIONS (3)
  - Venous thrombosis [Not Recovered/Not Resolved]
  - Product use in unapproved indication [Unknown]
  - Off label use [None]

NARRATIVE: CASE EVENT DATE: 20190524
